FAERS Safety Report 7648295-5 (Version None)
Quarter: 2011Q3

REPORT INFORMATION
  Report Type: 
  Country: None (occurrence: None)
  Receive Date: 20110801
  Receipt Date: 20110728
  Transmission Date: 20111222
  Serious: Yes (Life-Threatening, Hospitalization, Other)
  Sender: FDA-Public Use
  Company Number: FR-PFIZER INC-2011160326

PATIENT
  Age: 61 Year
  Sex: Female

DRUGS (10)
  1. LASIX [Suspect]
     Dosage: 20 MG, 1X/DAY
     Route: 048
     Dates: start: 20110413, end: 20110429
  2. LASIX [Suspect]
     Dosage: 20 MG, 1X/DAY
     Route: 048
     Dates: end: 20110609
  3. CACIT D3 [Concomitant]
     Dosage: UNK
  4. LANTUS [Concomitant]
     Dosage: UNK
  5. ALDACTONE [Suspect]
     Dosage: 75 MG
     Route: 048
     Dates: end: 20110609
  6. ALDACTONE [Suspect]
     Dosage: 50 MG
     Route: 048
     Dates: start: 20110510, end: 20110601
  7. HUMALOG [Concomitant]
     Dosage: UNK
  8. ALDACTONE [Suspect]
     Dosage: 75 MG, 2X/DAY
     Route: 048
     Dates: start: 20110413, end: 20110429
  9. LASIX [Suspect]
     Dosage: 20 MG, 1X/DAY
     Route: 048
     Dates: start: 20110101
  10. PANTOPRAZOLE SODIUM [Suspect]
     Dosage: 40 MG, UNK
     Route: 048
     Dates: start: 20110430, end: 20110609

REACTIONS (2)
  - AGRANULOCYTOSIS [None]
  - ANAEMIA [None]
